FAERS Safety Report 16109436 (Version 1)
Quarter: 2019Q1

REPORT INFORMATION
  Report Type: Spontaneous
  Country: FR (occurrence: FR)
  Receive Date: 20190324
  Receipt Date: 20190324
  Transmission Date: 20190418
  Serious: Yes (Hospitalization)
  Sender: FDA-Public Use
  Company Number: PHHY2019FR062575

PATIENT
  Age: 31 Year
  Sex: Female
  Weight: 48 kg

DRUGS (6)
  1. CARBOPLATIN HOSPIRA [Suspect]
     Active Substance: CARBOPLATIN
     Indication: ADENOCARCINOMA
     Dosage: 220 MG, ONCE/SINGLE
     Route: 041
     Dates: start: 20181224, end: 20181224
  2. ONDANSETRON ACCORD [Concomitant]
     Active Substance: ONDANSETRON
     Indication: PREMEDICATION
     Dosage: 8 MG, ONCE/SINGLE
     Route: 042
     Dates: start: 20181224, end: 20181224
  3. AZANTAC [Concomitant]
     Active Substance: RANITIDINE HYDROCHLORIDE
     Indication: PREMEDICATION
     Dosage: 25 MG, ONCE/SINGLE
     Route: 042
     Dates: start: 20181224, end: 20181224
  4. POLARAMINE [Concomitant]
     Active Substance: DEXCHLORPHENIRAMINE MALEATE
     Indication: PREMEDICATION
     Dosage: 2.5 MG, ONCE/SINGLE (TOTAL)
     Route: 042
     Dates: start: 20181224, end: 20181224
  5. METHYLPREDNISOLONE MYLAN [Concomitant]
     Active Substance: METHYLPREDNISOLONE
     Indication: PREMEDICATION
     Dosage: 60 MG, ONCE/SINGLE
     Route: 042
     Dates: start: 20181224, end: 20181224
  6. PACLITAXEL EBEWE [Suspect]
     Active Substance: PACLITAXEL
     Indication: ADENOCARCINOMA
     Dosage: 105 MG, ONCE/SINGLE
     Route: 041
     Dates: start: 20181224, end: 20181224

REACTIONS (5)
  - Vomiting [Recovered/Resolved]
  - Oxygen saturation decreased [Recovered/Resolved]
  - Infusion related reaction [Recovered/Resolved]
  - Dyspnoea [Recovered/Resolved]
  - Aphasia [Recovered/Resolved]

NARRATIVE: CASE EVENT DATE: 20181224
